FAERS Safety Report 8440076-8 (Version None)
Quarter: 2012Q2

REPORT INFORMATION
  Report Type: 
  Country: None (occurrence: None)
  Receive Date: 20120615
  Receipt Date: 20120611
  Transmission Date: 20120825
  Serious: Yes (Death)
  Sender: FDA-Public Use
  Company Number: US-ASTRAZENECA-2012SE38769

PATIENT
  Age: 59 Year
  Sex: Male
  Weight: 104.3 kg

DRUGS (12)
  1. SEROQUEL XR [Suspect]
     Indication: DEPRESSION
     Route: 048
     Dates: start: 20090101
  2. SEROQUEL XR [Suspect]
     Route: 048
     Dates: start: 20090101
  3. PAROXETINE [Concomitant]
  4. VENTOLIN [Concomitant]
     Dosage: PRN
  5. ALPRAZOLAM [Concomitant]
     Dosage: TWO TO THREE TABLETS A DAY
  6. ADVAIR DISKUS 100/50 [Concomitant]
     Dosage: ONCE A DAY
     Route: 055
  7. SEROQUEL XR [Suspect]
     Route: 048
     Dates: start: 20090101
  8. OMEPRAZOLE [Suspect]
     Route: 048
  9. SEROQUEL XR [Suspect]
     Indication: PARANOIA
     Route: 048
     Dates: start: 20090101
  10. ALPRAZOLAM [Concomitant]
  11. SEROQUEL XR [Suspect]
     Indication: ANXIETY
     Route: 048
     Dates: start: 20090101
  12. SEROQUEL XR [Suspect]
     Route: 048
     Dates: start: 20090101

REACTIONS (2)
  - GASTROOESOPHAGEAL REFLUX DISEASE [None]
  - DEATH [None]
